FAERS Safety Report 23156953 (Version 2)
Quarter: 2023Q4

REPORT INFORMATION
  Report Type: Spontaneous
  Country: CN (occurrence: CN)
  Receive Date: 20231108
  Receipt Date: 20231113
  Transmission Date: 20240109
  Serious: Yes (Hospitalization)
  Sender: FDA-Public Use
  Company Number: CN-BRISTOL-MYERS SQUIBB COMPANY-2023-158047

PATIENT
  Age: 55 Year
  Sex: Male

DRUGS (1)
  1. BARACLUDE [Suspect]
     Active Substance: ENTECAVIR
     Indication: Hepatitis
     Dosage: DOSE : 0.5G;     FREQ : QD; DRUG USE-TIMES: 1 DRUG USE-DAYS: 1
     Route: 048
     Dates: start: 20231010, end: 20231018

REACTIONS (2)
  - Platelet count decreased [Recovered/Resolved]
  - Prescribed overdose [Unknown]

NARRATIVE: CASE EVENT DATE: 20231018
